FAERS Safety Report 6092503-1 (Version None)
Quarter: 2009Q1

REPORT INFORMATION
  Report Type: 
  Country: None (occurrence: None)
  Receive Date: 20090223
  Receipt Date: 20090223
  Transmission Date: 20090719
  Serious: Yes (Hospitalization)
  Sender: FDA-Public Use
  Company Number: None

PATIENT
  Age: 50 Year
  Sex: Female
  Weight: 77.1115 kg

DRUGS (5)
  1. DEPAKOTE ER [Suspect]
     Indication: BIPOLAR DISORDER
     Dosage: 1500MG POOHS
     Route: 048
     Dates: start: 20090128
  2. SEROQUEL XR [Suspect]
     Indication: PANIC DISORDER
     Dosage: 1500 MG POQHS
     Route: 048
     Dates: start: 20090207
  3. PLACEBO [Suspect]
  4. ALBUTEROL [Concomitant]
  5. AMBIEN [Concomitant]

REACTIONS (8)
  - ANXIETY [None]
  - CHEST DISCOMFORT [None]
  - DEPRESSION [None]
  - DIZZINESS [None]
  - DYSPNOEA [None]
  - FEAR OF DEATH [None]
  - HYPERVENTILATION [None]
  - PANIC DISORDER [None]
